FAERS Safety Report 8432257-4 (Version None)
Quarter: 2012Q2

REPORT INFORMATION
  Report Type: 
  Country: None (occurrence: None)
  Receive Date: 20120613
  Receipt Date: 20120607
  Transmission Date: 20120825
  Serious: Yes (Other)
  Sender: FDA-Public Use
  Company Number: PHHY2011JP106468

PATIENT
  Sex: Male

DRUGS (9)
  1. PURSENNID [Concomitant]
     Indication: CONSTIPATION
     Dosage: 36 MG, UNK
     Route: 048
     Dates: start: 20081101
  2. CANDESARTAN CILEXETIL [Concomitant]
     Indication: HYPERTENSION
     Dosage: 8 MG, UNK
     Route: 048
     Dates: start: 20080319
  3. LOXONIN [Concomitant]
     Dosage: 180 MG, UNK
     Route: 048
     Dates: start: 20081015
  4. CYTOTEC [Concomitant]
     Dosage: 300 UG, UNK
     Route: 048
     Dates: start: 20081015
  5. ACETAMINOPHEN [Concomitant]
     Dosage: 1200 MG, UNK
     Route: 048
     Dates: start: 20091015
  6. CASODEX [Concomitant]
     Indication: PROSTATE CANCER
     Dosage: 80 MG, UNK
     Route: 048
     Dates: start: 20080807
  7. ZOMETA [Suspect]
     Indication: METASTASES TO BONE
     Dosage: 4 MG, PER ADMINISTRATION
     Route: 041
     Dates: start: 20081120, end: 20090903
  8. NORVASC [Concomitant]
     Indication: HYPERTENSION
     Dosage: 5 MG, UNK
     Route: 048
     Dates: start: 20080807
  9. OXYCONTIN [Concomitant]
     Dosage: 40 MG, UNK
     Route: 048
     Dates: start: 20090312

REACTIONS (10)
  - PRIMARY SEQUESTRUM [None]
  - ERYTHEMA [None]
  - SWELLING [None]
  - GINGIVAL INFECTION [None]
  - OSTEOMYELITIS [None]
  - OSTEONECROSIS OF JAW [None]
  - PAIN [None]
  - FISTULA [None]
  - EXPOSED BONE IN JAW [None]
  - SOFT TISSUE INFECTION [None]
